FAERS Safety Report 17992159 (Version 4)
Quarter: 2020Q3

REPORT INFORMATION
  Report Type: Report from Study
  Country: None (occurrence: NL)
  Receive Date: 20200708
  Receipt Date: 20200825
  Transmission Date: 20201103
  Serious: Yes (Hospitalization, Other)
  Sender: FDA-Public Use
  Company Number: NL-ABBVIE-20K-114-3471408-00

PATIENT
  Sex: Female

DRUGS (4)
  1. LEVODOPA/CARBIDOPA [Suspect]
     Active Substance: CARBIDOPA\LEVODOPA
     Indication: PARKINSON^S DISEASE
     Route: 050
     Dates: start: 20150325
  2. SIFROL [Concomitant]
     Active Substance: PRAMIPEXOLE
     Indication: PARKINSON^S DISEASE
     Dosage: ONCE A DAY IN THE EVENING
  3. LEVODOPA/CARBIDOPA [Suspect]
     Active Substance: CARBIDOPA\LEVODOPA
  4. RIVASTIGMIN [Concomitant]
     Active Substance: RIVASTIGMINE
     Indication: HALLUCINATION
     Dosage: ONE PER 24 HOURS
     Route: 062
     Dates: start: 20200327

REACTIONS (5)
  - Generalised oedema [Recovering/Resolving]
  - Cardiac failure [Recovering/Resolving]
  - Pulmonary oedema [Unknown]
  - Localised oedema [Unknown]
  - Oedema peripheral [Unknown]
